FAERS Safety Report 4369074-0 (Version None)
Quarter: 2004Q2

REPORT INFORMATION
  Report Type: 
  Country: None (occurrence: None)
  Receive Date: 20040528
  Receipt Date: 20040518
  Transmission Date: 20050107
  Serious: Yes (Hospitalization)
  Sender: FDA-Public Use
  Company Number: 2003156725JP

PATIENT
  Age: 26 Year
  Sex: Male
  Weight: 49.4 kg

DRUGS (1)
  1. SULFASALAZINE [Suspect]
     Indication: COLITIS ULCERATIVE
     Dosage: 1500 MG, TID, ORAL
     Route: 048
     Dates: start: 20030331, end: 20030415

REACTIONS (1)
  - DRUG HYPERSENSITIVITY [None]
